FAERS Safety Report 9501415 (Version 1)
Quarter: 2013Q3

REPORT INFORMATION
  Report Type: Spontaneous
  Country: US (occurrence: US)
  Receive Date: 20130905
  Receipt Date: 20130905
  Transmission Date: 20140515
  Serious: No
  Sender: FDA-Public Use
  Company Number: US-B.I. PHARMACEUTICALS,INC./RIDGEFIELD-2013-BI-27330BP

PATIENT
  Sex: Male

DRUGS (13)
  1. PRADAXA [Suspect]
     Indication: ATRIAL FIBRILLATION
     Dosage: 300 MG
     Route: 048
     Dates: start: 2011
  2. DOXZOSYN [Concomitant]
  3. CARBIDOPA/LEVODOPA [Concomitant]
     Indication: PARKINSON^S DISEASE
  4. METOPROLOL [Concomitant]
     Indication: HYPERTENSION
     Dosage: 50 MG
     Route: 048
     Dates: start: 2008
  5. POTASSIUM CHLORIDE [Concomitant]
     Indication: BLOOD POTASSIUM DECREASED
     Dosage: 20 MEQ
     Route: 048
     Dates: start: 1988
  6. AMIODARONE [Concomitant]
     Indication: ATRIAL FIBRILLATION
  7. SIMVASTATIN [Concomitant]
     Indication: BLOOD CHOLESTEROL INCREASED
     Dosage: 20 MG
     Route: 048
     Dates: start: 1998
  8. FLUOXETINE [Concomitant]
  9. LORAZEPAM [Concomitant]
     Indication: DEPRESSION
     Dosage: 1 MG
     Route: 048
  10. ROPINIROLE [Concomitant]
  11. AMOXAPINE [Concomitant]
  12. DOXYCYCLINE [Concomitant]
  13. FUROSEMIDE [Concomitant]
     Dates: start: 1988

REACTIONS (1)
  - Parkinson^s disease [Not Recovered/Not Resolved]
